FAERS Safety Report 4693428-6 (Version None)
Quarter: 2005Q2

REPORT INFORMATION
  Report Type: 
  Country: None (occurrence: None)
  Receive Date: 20050617
  Receipt Date: 20050609
  Transmission Date: 20051028
  Serious: Yes (Hospitalization)
  Sender: FDA-Public Use
  Company Number: PHRM2005FR01784

PATIENT
  Age: 16 Year
  Sex: Male

DRUGS (1)
  1. NEORAL [Suspect]
     Indication: BONE MARROW TRANSPLANT
     Dosage: 80 MG, BID
     Route: 048
     Dates: start: 20050117

REACTIONS (1)
  - GUILLAIN-BARRE SYNDROME [None]
